FAERS Safety Report 8592644-0 (Version None)
Quarter: 2012Q3

REPORT INFORMATION
  Report Type: 
  Country: None (occurrence: None)
  Receive Date: 20120814
  Receipt Date: 20120802
  Transmission Date: 20120928
  Serious: Yes (Other)
  Sender: FDA-Public Use
  Company Number: US-ELI_LILLY_AND_COMPANY-US201208001297

PATIENT
  Age: 59 Year
  Sex: Female

DRUGS (5)
  1. HUMALOG MIX 75/25 [Suspect]
     Indication: DIABETES MELLITUS
     Dosage: 35 DF, TID
  2. HUMALOG MIX 75/25 [Suspect]
     Dosage: 35 DF, TID
  3. HUMALOG MIX 75/25 [Suspect]
     Dosage: 35 DF, TID
  4. HUMALOG MIX 75/25 [Suspect]
     Dosage: 35 DF, TID
  5. HUMALOG MIX 75/25 [Suspect]
     Dosage: 35 DF, TID

REACTIONS (5)
  - HYPERSENSITIVITY [None]
  - PHARYNGEAL OEDEMA [None]
  - SWELLING FACE [None]
  - WEIGHT INCREASED [None]
  - LIP SWELLING [None]
